FAERS Safety Report 5677457-1 (Version None)
Quarter: 2008Q1

REPORT INFORMATION
  Report Type: 
  Country: None (occurrence: None)
  Receive Date: 20080324
  Receipt Date: 20080312
  Transmission Date: 20080703
  Serious: Yes (Other)
  Sender: FDA-Public Use
  Company Number: US-PFIZER INC-2008022971

PATIENT
  Sex: Female
  Weight: 96.6 kg

DRUGS (2)
  1. DETROL LA [Suspect]
     Indication: BLADDER SPASM
     Dates: start: 20071201, end: 20080201
  2. MOBIC [Concomitant]

REACTIONS (9)
  - ANAEMIA [None]
  - CONSTIPATION [None]
  - HEADACHE [None]
  - ORAL INTAKE REDUCED [None]
  - RED BLOOD CELL COUNT DECREASED [None]
  - SCREAMING [None]
  - URINARY TRACT PAIN [None]
  - UTERINE DILATION AND CURETTAGE [None]
  - VISION BLURRED [None]
